FAERS Safety Report 8431670 (Version 5)
Quarter: 2012Q4

REPORT INFORMATION
  Report Type: 
  Country: US (occurrence: US)
  Receive Date: 20120228
  Receipt Date: 20120928
  Transmission Date: 20130627
  Serious: Yes (Hospitalization, Other)
  Sender: FDA-Public Use
  Company Number: US-009507513-1202USA03892

PATIENT

DRUGS (7)
  1. FOSAMAX [Suspect]
     Indication: OSTEOPOROSIS POSTMENOPAUSAL
     Dosage: 70 mg QW
     Route: 048
     Dates: start: 20030724, end: 200508
  2. FOSAMAX PLUS D [Suspect]
     Indication: OSTEOPOROSIS POSTMENOPAUSAL
     Dosage: 70 mg/2800
     Route: 048
     Dates: start: 200511, end: 20100511
  3. ALENDRONATE SODIUM [Suspect]
     Indication: OSTEOPOROSIS POSTMENOPAUSAL
     Dosage: 70 mg, weekly
     Route: 048
     Dates: start: 20100730
  4. NORVASC [Concomitant]
     Indication: HYPERTENSION
     Dosage: 2.5 mg, qd
  5. LIPITOR [Concomitant]
     Indication: HYPERCHOLESTEROLAEMIA
     Dosage: 10 mg, QM
     Dates: start: 200109
  6. NITRODERM [Concomitant]
  7. VITAMINS (UNSPECIFIED) [Concomitant]
     Dosage: UNK
     Dates: start: 2002

REACTIONS (31)
  - Femur fracture [Unknown]
  - Femur fracture [Unknown]
  - Open reduction of fracture [Unknown]
  - Myocardial infarction [Unknown]
  - Low turnover osteopathy [Unknown]
  - Hypoaesthesia [Unknown]
  - Fall [Unknown]
  - Periarthritis [Unknown]
  - Osteoarthritis [Unknown]
  - Synovitis [Unknown]
  - Deep vein thrombosis [Unknown]
  - Anaemia [Unknown]
  - Gait disturbance [Unknown]
  - Haemoglobin decreased [Unknown]
  - Incisional drainage [Unknown]
  - Arthritis [Unknown]
  - Joint crepitation [Unknown]
  - Limb deformity [Unknown]
  - Arthralgia [Unknown]
  - Musculoskeletal discomfort [Unknown]
  - Flatulence [Unknown]
  - Constipation [Unknown]
  - Blood calcium decreased [Unknown]
  - Supraventricular extrasystoles [Unknown]
  - Muscular weakness [Unknown]
  - Arthropathy [Unknown]
  - Chest pain [Unknown]
  - Electrocardiogram ST-T change [Unknown]
  - Drug tolerance [Unknown]
  - Constipation [Unknown]
  - QRS axis abnormal [Unknown]
